FAERS Safety Report 26167543 (Version 1)
Quarter: 2025Q4

REPORT INFORMATION
  Report Type: Spontaneous
  Country: US (occurrence: US)
  Receive Date: 20251217
  Receipt Date: 20251217
  Transmission Date: 20260117
  Serious: Yes (Life-Threatening, Hospitalization, Other)
  Sender: UNICHEM
  Company Number: US-UNICHEM LABORATORIES LIMITED-UNI-2025-US-004149

PATIENT

DRUGS (1)
  1. METFORMIN [Suspect]
     Active Substance: METFORMIN HYDROCHLORIDE
     Indication: Type 2 diabetes mellitus
     Dosage: 1000 MG TWICE DAILY
     Route: 065

REACTIONS (6)
  - Acute kidney injury [Unknown]
  - Respiratory distress [Unknown]
  - Metabolic acidosis [Recovering/Resolving]
  - Toxicity to various agents [Recovering/Resolving]
  - Hyperkalaemia [Unknown]
  - Lactic acidosis [Recovering/Resolving]
